APPROVED DRUG PRODUCT: VANOBID
Active Ingredient: CANDICIDIN
Strength: 0.6MG/GM
Dosage Form/Route: OINTMENT;VAGINAL
Application: A061596 | Product #001
Applicant: SANOFI AVENTIS US LLC
Approved: Approved Prior to Jan 1, 1982 | RLD: No | RS: No | Type: DISCN